FAERS Safety Report 9157146 (Version 1)
Quarter: 2013Q1

REPORT INFORMATION
  Report Type: Spontaneous
  Country: US (occurrence: US)
  Receive Date: 20130312
  Receipt Date: 20130312
  Transmission Date: 20140127
  Serious: No
  Sender: FDA-Public Use
  Company Number: US-PFIZER INC-2013079475

PATIENT
  Age: 63 Year
  Sex: Female
  Weight: 81.6 kg

DRUGS (2)
  1. LATANOPROST [Suspect]
     Indication: GLAUCOMA
     Dosage: ONE DROP IN EACH EYE, 1X/DAY
     Route: 047
     Dates: start: 201302, end: 201302
  2. LATANOPROST [Suspect]
     Route: 047

REACTIONS (1)
  - Eye irritation [Recovered/Resolved]
